FAERS Safety Report 5512266-5 (Version None)
Quarter: 2007Q4

REPORT INFORMATION
  Report Type: 
  Country: None (occurrence: None)
  Receive Date: 20071112
  Receipt Date: 20070830
  Transmission Date: 20080405
  Serious: No
  Sender: FDA-Public Use
  Company Number: A0677754A

PATIENT
  Age: 26 Year
  Sex: Male

DRUGS (2)
  1. VERAMYST [Suspect]
     Indication: SINUS OPERATION
     Dosage: 4SPR PER DAY
     Route: 045
     Dates: start: 20070809, end: 20070823
  2. SALINE NASAL SPRAY [Concomitant]

REACTIONS (1)
  - RASH [None]
